FAERS Safety Report 24582337 (Version 2)
Quarter: 2024Q4

REPORT INFORMATION
  Report Type: Spontaneous
  Country: US (occurrence: US)
  Receive Date: 20241105
  Receipt Date: 20241130
  Transmission Date: 20250115
  Serious: No
  Sender: ABBVIE
  Company Number: US-ABBVIE-5982187

PATIENT
  Sex: Male

DRUGS (2)
  1. RESTASIS [Suspect]
     Active Substance: CYCLOSPORINE
     Indication: Glaucoma
     Route: 047
  2. RESTASIS [Suspect]
     Active Substance: CYCLOSPORINE
     Indication: Meibomian gland dysfunction

REACTIONS (1)
  - Off label use [Unknown]
